FAERS Safety Report 25037544 (Version 1)
Quarter: 2025Q1

REPORT INFORMATION
  Report Type: Spontaneous
  Country: US (occurrence: None)
  Receive Date: 20250304
  Receipt Date: 20250304
  Transmission Date: 20250408
  Serious: Yes (Hospitalization)
  Sender: FDA-CTU
  Company Number: None

PATIENT
  Sex: Female

DRUGS (4)
  1. NUCALA [Suspect]
     Active Substance: MEPOLIZUMAB
     Indication: Asthma
     Dosage: FREQUENCY : MONTHLY;?
     Route: 058
  2. ALBUTEROL AER HFA [Concomitant]
  3. PREDNISONE [Concomitant]
     Active Substance: PREDNISONE
  4. ZYRTEC ALLGY TAB 10MG [Concomitant]

REACTIONS (4)
  - Therapeutic product effect incomplete [None]
  - Impaired quality of life [None]
  - Asthma [None]
  - Infection [None]
